FAERS Safety Report 5859666-1 (Version None)
Quarter: 2008Q3

REPORT INFORMATION
  Report Type: 
  Country: None (occurrence: None)
  Receive Date: 20080827
  Receipt Date: 20080818
  Transmission Date: 20090109
  Serious: Yes (Hospitalization)
  Sender: FDA-Public Use
  Company Number: FR-WATSON-2008-04955

PATIENT
  Age: 55 Year
  Sex: Female

DRUGS (4)
  1. GABAPENTIN [Suspect]
     Indication: EPILEPSY
     Dosage: 900 MG, DAILY X 24 DAYS
     Route: 065
     Dates: start: 20070101, end: 20070101
  2. VANCOMYCIN HYDROCHLORIDE [Concomitant]
     Indication: MENINGITIS
     Dosage: UNK
     Route: 065
     Dates: start: 20070101, end: 20070101
  3. MEROPENEM [Concomitant]
     Indication: MENINGITIS
     Dosage: UNK
     Route: 065
     Dates: start: 20070101, end: 20070101
  4. AMIKLIN                            /00391001/ [Concomitant]
     Indication: MENINGITIS
     Dosage: UNK
     Route: 065
     Dates: start: 20070101, end: 20070101

REACTIONS (1)
  - DRUG RASH WITH EOSINOPHILIA AND SYSTEMIC SYMPTOMS [None]
